FAERS Safety Report 15050617 (Version 1)
Quarter: 2018Q2

REPORT INFORMATION
  Report Type: Spontaneous
  Country: US (occurrence: US)
  Receive Date: 20180622
  Receipt Date: 20180622
  Transmission Date: 20180711
  Serious: No
  Sender: FDA-Public Use
  Company Number: US-ASTELLAS-2017US043044

PATIENT
  Sex: Female

DRUGS (5)
  1. VESICARE [Suspect]
     Active Substance: SOLIFENACIN SUCCINATE
     Indication: CYSTITIS INTERSTITIAL
  2. VESICARE [Suspect]
     Active Substance: SOLIFENACIN SUCCINATE
     Indication: BLADDER DISORDER
     Dosage: UNK, UNKNOWN FREQ.
     Route: 065
  3. VESICARE [Suspect]
     Active Substance: SOLIFENACIN SUCCINATE
     Indication: PAIN
  4. VESICARE [Suspect]
     Active Substance: SOLIFENACIN SUCCINATE
     Indication: CYSTITIS ULCERATIVE
  5. VESICARE [Suspect]
     Active Substance: SOLIFENACIN SUCCINATE
     Indication: MUSCLE SPASMS

REACTIONS (2)
  - Treatment noncompliance [Unknown]
  - Product use in unapproved indication [Unknown]
